FAERS Safety Report 11849067 (Version 3)
Quarter: 2016Q2

REPORT INFORMATION
  Report Type: Report from Study
  Country: US (occurrence: US)
  Receive Date: 20151218
  Receipt Date: 20160427
  Transmission Date: 20160815
  Serious: Yes (Other)
  Sender: FDA-Public Use
  Company Number: US-BAYER-2015-423687

PATIENT
  Age: 61 Year
  Sex: Male

DRUGS (2)
  1. STIVARGA [Suspect]
     Active Substance: REGORAFENIB
     Indication: GASTROINTESTINAL CARCINOMA
     Dosage: 80 MG, QD
     Route: 048
     Dates: start: 20150204
  2. STIVARGA [Suspect]
     Active Substance: REGORAFENIB
     Indication: GASTROINTESTINAL CARCINOMA
     Dosage: 80 MG, QD
     Route: 048
     Dates: start: 20150626

REACTIONS (9)
  - Pain in extremity [Not Recovered/Not Resolved]
  - Poor peripheral circulation [None]
  - Palmar-plantar erythrodysaesthesia syndrome [None]
  - Rash [None]
  - Dry skin [None]
  - Emergency care [None]
  - Drug dose omission [None]
  - Depression [None]
  - Alopecia [None]
